FAERS Safety Report 13458124 (Version 1)
Quarter: 2017Q2

REPORT INFORMATION
  Report Type: Spontaneous
  Country: US (occurrence: US)
  Receive Date: 20170419
  Receipt Date: 20170419
  Transmission Date: 20170830
  Serious: Yes (Other)
  Sender: FDA-Public Use
  Company Number: US-ASTRAZENECA-2017SE38698

PATIENT
  Age: 53 Year
  Sex: Female
  Weight: 79.4 kg

DRUGS (4)
  1. ARIMIDEX [Suspect]
     Active Substance: ANASTROZOLE
     Indication: BREAST CANCER
     Route: 048
     Dates: start: 201611
  2. TAMOXIFEN [Suspect]
     Active Substance: TAMOXIFEN
     Indication: BREAST CANCER
     Route: 048
     Dates: start: 2002, end: 2007
  3. ARIMIDEX [Suspect]
     Active Substance: ANASTROZOLE
     Indication: BREAST CANCER
     Route: 048
     Dates: start: 201101, end: 201611
  4. ARIMIDEX [Suspect]
     Active Substance: ANASTROZOLE
     Indication: BREAST CANCER
     Dosage: GENERIC 1 MG DAILY
     Route: 048
     Dates: start: 2007, end: 2009

REACTIONS (3)
  - Anxiety [Recovered/Resolved]
  - Breast cancer recurrent [Unknown]
  - Hot flush [Unknown]

NARRATIVE: CASE EVENT DATE: 2007
